FAERS Safety Report 8536816-X (Version None)
Quarter: 2012Q3

REPORT INFORMATION
  Report Type: 
  Country: None (occurrence: None)
  Receive Date: 20120725
  Receipt Date: 20120716
  Transmission Date: 20120928
  Serious: Yes (Other)
  Sender: FDA-Public Use
  Company Number: US-ELI_LILLY_AND_COMPANY-US201205000643

PATIENT
  Sex: Female
  Weight: 101.13 kg

DRUGS (15)
  1. CALCIUM CARBONATE [Concomitant]
  2. ALDACTONE [Concomitant]
  3. ASPIRIN [Concomitant]
     Dosage: 325 MG, QD
  4. TORSEMIDE [Concomitant]
  5. ZYRTEC [Concomitant]
  6. LYRICA [Concomitant]
  7. VITAMIN D [Concomitant]
  8. SYNTHROID [Concomitant]
  9. COREG [Concomitant]
  10. SIMCOR [Concomitant]
  11. HUMULIN R [Concomitant]
  12. EFFIENT [Suspect]
     Indication: IN-STENT CORONARY ARTERY RESTENOSIS
     Dosage: 10 MG, BID
     Route: 048
     Dates: start: 20110227
  13. COUMADIN [Concomitant]
  14. LISINOPRIL [Concomitant]
  15. MULTI-VITAMIN [Concomitant]

REACTIONS (2)
  - THROMBOSIS IN DEVICE [None]
  - OFF LABEL USE [None]
